FAERS Safety Report 4338093-2 (Version None)
Quarter: 2004Q2

REPORT INFORMATION
  Report Type: 
  Country: None (occurrence: None)
  Receive Date: 20040407
  Receipt Date: 20040323
  Transmission Date: 20050107
  Serious: Yes (Hospitalization)
  Sender: FDA-Public Use
  Company Number: 235733

PATIENT
  Age: 25 Year
  Sex: Female

DRUGS (2)
  1. NPH INSULIN [Suspect]
     Indication: DIABETES MELLITUS INSULIN-DEPENDENT
     Dosage: 26 IU, QD, SUBCUTANEOUS
     Route: 058
  2. PENFIL R CHU (INSULIN HUMAN) SOLUTION FOR INJECTION, 100IU/ML [Suspect]
     Indication: DIABETES MELLITUS INSULIN-DEPENDENT
     Dosage: 12 IU, QD, SUBCUTANEOUS
     Route: 058

REACTIONS (1)
  - MYELOPATHY [None]
